FAERS Safety Report 16425900 (Version 2)
Quarter: 2020Q1

REPORT INFORMATION
  Report Type: Spontaneous
  Country: US (occurrence: US)
  Receive Date: 20190613
  Receipt Date: 20200331
  Transmission Date: 20200409
  Serious: Yes (Other)
  Sender: FDA-Public Use
  Company Number: US-GILEAD-2019-0412958

PATIENT
  Age: 42 Year
  Sex: Male
  Weight: 90.7 kg

DRUGS (17)
  1. VENTOLIN [Concomitant]
     Active Substance: ALBUTEROL SULFATE
  2. MUPIROCIN. [Concomitant]
     Active Substance: MUPIROCIN
  3. TRUVADA [Suspect]
     Active Substance: EMTRICITABINE\TENOFOVIR DISOPROXIL FUMARATE
     Indication: HIV INFECTION
     Dosage: UNK
     Route: 048
     Dates: start: 2013, end: 2016
  4. STRIBILD [Suspect]
     Active Substance: COBICISTAT\ELVITEGRAVIR\EMTRICITABINE\TENOFOVIR DISOPROXIL FUMARATE
     Indication: HIV INFECTION
     Dosage: UNK
     Route: 048
     Dates: start: 2016, end: 2018
  5. RAMIPRIL. [Concomitant]
     Active Substance: RAMIPRIL
  6. DOXYCYCLINE. [Concomitant]
     Active Substance: DOXYCYCLINE
  7. BIOFREEZE [CAMPHOR;MENTHOL] [Concomitant]
  8. EPINEPHRINE. [Concomitant]
     Active Substance: EPINEPHRINE
  9. TRAMADOL. [Concomitant]
     Active Substance: TRAMADOL
  10. MULTIVITAMINS [VITAMINS NOS] [Concomitant]
     Active Substance: VITAMINS
  11. IBUPROFEN. [Concomitant]
     Active Substance: IBUPROFEN
  12. QVAR [Concomitant]
     Active Substance: BECLOMETHASONE DIPROPIONATE
  13. ALBUTEROL [SALBUTAMOL] [Concomitant]
     Active Substance: ALBUTEROL
  14. GENVOYA [Concomitant]
     Active Substance: COBICISTAT\ELVITEGRAVIR\EMTRICITABINE\TENOFOVIR ALAFENAMIDE FUMARATE
  15. LORATADINE. [Concomitant]
     Active Substance: LORATADINE
  16. HIBICLENS [Concomitant]
     Active Substance: CHLORHEXIDINE GLUCONATE
  17. METRONIDAZOL [METRONIDAZOLE] [Concomitant]
     Active Substance: METRONIDAZOLE

REACTIONS (7)
  - Osteoporosis [Unknown]
  - Economic problem [Unknown]
  - Osteochondritis [Not Recovered/Not Resolved]
  - Pain [Unknown]
  - Anhedonia [Unknown]
  - Emotional distress [Unknown]
  - Anxiety [Unknown]

NARRATIVE: CASE EVENT DATE: 201905
